FAERS Safety Report 8004448-8 (Version None)
Quarter: 2011Q4

REPORT INFORMATION
  Report Type: 
  Country: None (occurrence: None)
  Receive Date: 20111221
  Receipt Date: 20111221
  Transmission Date: 20120403
  Serious: Yes (Other)
  Sender: FDA-Public Use
  Company Number: None

PATIENT
  Sex: Female
  Weight: 72.5755 kg

DRUGS (1)
  1. ALENDRONATE SODIUM [Suspect]
     Indication: OSTEOPENIA
     Dosage: 1 PER WEEK
     Dates: start: 20110701, end: 20110918

REACTIONS (5)
  - DIARRHOEA [None]
  - MALAISE [None]
  - VOMITING [None]
  - PAIN [None]
  - FAECES DISCOLOURED [None]
